FAERS Safety Report 7135110-1 (Version None)
Quarter: 2010Q4

REPORT INFORMATION
  Report Type: 
  Country: None (occurrence: None)
  Receive Date: 20101203
  Receipt Date: 20101119
  Transmission Date: 20110411
  Serious: No
  Sender: FDA-Public Use
  Company Number: FR-ELI_LILLY_AND_COMPANY-FR201011005416

PATIENT
  Age: 60 Year
  Sex: Female

DRUGS (2)
  1. CYMBALTA [Suspect]
     Indication: NEURALGIA
     Dosage: 30 MG, DAILY (1/D)
     Route: 048
     Dates: start: 20101114, end: 20101116
  2. CYMBALTA [Suspect]
     Dosage: 30 MG, QOD

REACTIONS (8)
  - DECREASED APPETITE [None]
  - GASTROINTESTINAL PAIN [None]
  - HEADACHE [None]
  - HEPATIC PAIN [None]
  - NAUSEA [None]
  - OFF LABEL USE [None]
  - PERIPHERAL VASCULAR DISORDER [None]
  - TINNITUS [None]
